FAERS Safety Report 21728445 (Version 1)
Quarter: 2022Q4

REPORT INFORMATION
  Report Type: Spontaneous
  Country: US (occurrence: US)
  Receive Date: 20221214
  Receipt Date: 20221214
  Transmission Date: 20230113
  Serious: No
  Sender: FDA-Public Use
  Company Number: US-Dermavant-000235

PATIENT
  Age: 30 Year
  Sex: Male

DRUGS (2)
  1. TAPINAROF [Suspect]
     Active Substance: TAPINAROF
     Indication: Psoriasis
     Dosage: ONCE DAILY
     Route: 061
     Dates: end: 202210
  2. Clobetasol foam [Concomitant]

REACTIONS (1)
  - Folliculitis [Not Recovered/Not Resolved]
